FAERS Safety Report 16534329 (Version 1)
Quarter: 2019Q3

REPORT INFORMATION
  Report Type: Spontaneous
  Country: US (occurrence: US)
  Receive Date: 20190704
  Receipt Date: 20190704
  Transmission Date: 20191004
  Serious: Yes (Disabling)
  Sender: FDA-Public Use
  Company Number: None

PATIENT
  Age: 45 Year
  Sex: Female
  Weight: 67.95 kg

DRUGS (19)
  1. PRN DICLOFENAC [Concomitant]
  2. METHOCARBAMOL. [Concomitant]
     Active Substance: METHOCARBAMOL
  3. DEXTROAMPHET SACCHARAT, AMPHET ASPARTATE, DEXTROAMPHET SULFATE AND AMPHET SULFAT [Suspect]
     Active Substance: AMPHETAMINE ASPARTATE\AMPHETAMINE SULFATE\DEXTROAMPHETAMINE SACCHARATE\DEXTROAMPHETAMINE SULFATE
     Indication: COGNITIVE DISORDER
     Dosage: ?          QUANTITY:1 CAPSULE(S);?
     Route: 048
     Dates: start: 20190610, end: 20190615
  4. ATOMOXETINE. [Concomitant]
     Active Substance: ATOMOXETINE HYDROCHLORIDE
  5. GABAPENTIN. [Concomitant]
     Active Substance: GABAPENTIN
  6. ELETRIPTAN. [Concomitant]
     Active Substance: ELETRIPTAN
  7. PRN MEDICAL IMPLANT-NEUROSTIMULATOR [Concomitant]
  8. CYFLACALM [Concomitant]
  9. LYMPH-SPPT [Concomitant]
  10. DEXTROAMPHET SACCHARAT, AMPHET ASPARTATE, DEXTROAMPHET SULFATE AND AMPHET SULFAT [Suspect]
     Active Substance: AMPHETAMINE ASPARTATE\AMPHETAMINE SULFATE\DEXTROAMPHETAMINE SACCHARATE\DEXTROAMPHETAMINE SULFATE
     Indication: ATTENTION DEFICIT/HYPERACTIVITY DISORDER
     Dosage: ?          QUANTITY:1 CAPSULE(S);?
     Route: 048
     Dates: start: 20190610, end: 20190615
  11. DECICCATED ADRENAL [Concomitant]
  12. CLONAZEPAM. [Concomitant]
     Active Substance: CLONAZEPAM
  13. MULTIVITAMINS/MINERALS [Concomitant]
  14. TRAZODONE [Concomitant]
     Active Substance: TRAZODONE HYDROCHLORIDE
  15. ADDERALL [Concomitant]
     Active Substance: AMPHETAMINE ASPARTATE\AMPHETAMINE SULFATE\DEXTROAMPHETAMINE SACCHARATE\DEXTROAMPHETAMINE SULFATE
  16. GENERIC SYNTHROID [Concomitant]
     Active Substance: LEVOTHYROXINE SODIUM
  17. T9 PADDLE PLACEMENT [Concomitant]
  18. NAPROXEN SODIUM. [Concomitant]
     Active Substance: NAPROXEN SODIUM
  19. THYROTAIN THYROID SUPPORT SUPPLEMENT [Concomitant]

REACTIONS (9)
  - Condition aggravated [None]
  - Product physical consistency issue [None]
  - Product odour abnormal [None]
  - Drug ineffective [None]
  - Nausea [None]
  - Migraine [None]
  - Dysgeusia [None]
  - Abdominal pain [None]
  - Product substitution issue [None]

NARRATIVE: CASE EVENT DATE: 20190610
